FAERS Safety Report 20040405 (Version 1)
Quarter: 2021Q4

REPORT INFORMATION
  Report Type: Spontaneous
  Country: US (occurrence: None)
  Receive Date: 20211105
  Receipt Date: 20211105
  Transmission Date: 20220303
  Serious: Yes (Other)
  Sender: FDA-Public Use
  Company Number: None

PATIENT
  Sex: Female

DRUGS (1)
  1. BREYANZI [Suspect]
     Active Substance: LISOCABTAGENE MARALEUCEL

REACTIONS (5)
  - Pyrexia [None]
  - Hypoxia [None]
  - Cytokine release syndrome [None]
  - Pleural effusion [None]
  - Neurotoxicity [None]

NARRATIVE: CASE EVENT DATE: 20210702
